FAERS Safety Report 11171564 (Version 1)
Quarter: 2015Q2

REPORT INFORMATION
  Report Type: Spontaneous
  Country: US (occurrence: None)
  Receive Date: 20150515
  Receipt Date: 20150515
  Transmission Date: 20150821
  Serious: Yes (Other)
  Sender: FDA-Public Use
  Company Number: 2015007391

PATIENT
  Sex: Female

DRUGS (1)
  1. CIMZIA [Suspect]
     Active Substance: CERTOLIZUMAB PEGOL
     Indication: PRODUCT USED FOR UNKNOWN INDICATION
     Route: 058

REACTIONS (22)
  - Chills [None]
  - Constipation [None]
  - Oedema [None]
  - Injection site pain [None]
  - Diarrhoea [None]
  - Headache [None]
  - Dyspnoea [None]
  - Pyrexia [None]
  - Hypertension [None]
  - Wheezing [None]
  - Drug ineffective [None]
  - Overdose [None]
  - Injection site bruising [None]
  - Dry eye [None]
  - Flushing [None]
  - Rash [None]
  - Vomiting [None]
  - Hypotension [None]
  - Palpitations [None]
  - Injection site erythema [None]
  - Laboratory test abnormal [None]
  - Nausea [None]

NARRATIVE: CASE EVENT DATE: 2014
